FAERS Safety Report 8219853-4 (Version None)
Quarter: 2012Q1

REPORT INFORMATION
  Report Type: 
  Country: None (occurrence: None)
  Receive Date: 20120319
  Receipt Date: 20100511
  Transmission Date: 20120608
  Serious: Yes (Hospitalization, Other)
  Sender: FDA-Public Use
  Company Number: US-CELGENEUS-163-21880-10020005

PATIENT
  Sex: Female

DRUGS (23)
  1. VASOTEC [Concomitant]
     Dosage: 2.5 MILLIGRAM
     Route: 048
     Dates: start: 20100104
  2. LASIX [Concomitant]
     Dosage: 1.5
     Route: 048
     Dates: start: 20080721
  3. NITROGLYCERIN [Concomitant]
     Dosage: .4 MILLIGRAM
     Route: 060
  4. POTASSIUM CHLORIDE [Concomitant]
     Dosage: 20 MILLIEQUIVALENTS
     Route: 048
     Dates: start: 20100312
  5. OMEPRAZOLE [Concomitant]
     Dosage: 20 MILLIGRAM
     Route: 048
     Dates: start: 20081230
  6. COMPAZINE [Concomitant]
     Dosage: 10 MILLIGRAM
     Route: 048
     Dates: start: 20090622
  7. TYLENOL [Concomitant]
     Dosage: 650 MILLIGRAM
     Route: 048
  8. ZANTAC [Concomitant]
     Dosage: 150 MILLIGRAM
     Route: 048
     Dates: start: 20080917
  9. CALTRATE 600 WITH VITAMIN D [Concomitant]
     Dosage: 600MG-200UNITS
     Route: 048
  10. FLEXTRA-650 [Concomitant]
     Dosage: 650/60MG .5-1 TABLET
     Route: 048
     Dates: start: 20081014
  11. REVLIMID [Suspect]
     Indication: MULTIPLE MYELOMA
     Dosage: 15 MILLIGRAM
     Route: 048
     Dates: start: 20090330
  12. ACULAR LS [Concomitant]
     Dosage: 0.4% 1 DROP
     Route: 047
  13. ASPIRIN [Concomitant]
     Dosage: 81 MILLIGRAM
     Route: 048
     Dates: start: 20070906
  14. LEVOXYL [Concomitant]
     Dosage: .15 MILLIGRAM
     Route: 048
     Dates: start: 20091201
  15. MIRALAX [Concomitant]
     Dosage: 17 GRAM
     Route: 048
  16. PRED FORTE [Concomitant]
     Dosage: 1 DROP
     Route: 047
  17. REVLIMID [Suspect]
     Dosage: 15 MILLIGRAM
     Route: 048
     Dates: start: 20100201
  18. DEXAMETHASONE [Concomitant]
     Dosage: 40 MILLIGRAM
     Route: 048
     Dates: start: 20091202
  19. ERGOCALCIFEROL [Concomitant]
     Dosage: 50000 IU (INTERNATIONAL UNIT)
     Route: 048
     Dates: start: 20100205
  20. OCUSOFT [Concomitant]
     Dosage: 1 DROP
     Route: 061
  21. RED BLOOD CELLS [Concomitant]
     Dosage: 2 UNITS
     Route: 041
  22. LORTAB [Concomitant]
     Dosage: 500/7.5MG
     Route: 048
     Dates: start: 20090604
  23. NEURONTIN [Concomitant]
     Dosage: 600 MILLIGRAM
     Route: 048
     Dates: start: 20091110

REACTIONS (4)
  - ANAEMIA [None]
  - RENAL FAILURE ACUTE [None]
  - ESCHERICHIA SEPSIS [None]
  - CHOLESTASIS [None]
